FAERS Safety Report 6339758-3 (Version None)
Quarter: 2009Q3

REPORT INFORMATION
  Report Type: 
  Country: None (occurrence: None)
  Receive Date: 20090903
  Receipt Date: 20090825
  Transmission Date: 20100115
  Serious: Yes (Other)
  Sender: FDA-Public Use
  Company Number: US-ELI_LILLY_AND_COMPANY-US200908005643

PATIENT
  Sex: Female

DRUGS (3)
  1. CYMBALTA [Suspect]
     Indication: NEUROPATHY PERIPHERAL
     Dosage: 60 MG, DAILY (1/D)
     Dates: start: 20070101, end: 20090801
  2. LIZINOPRIL H [Concomitant]
     Indication: HYPERTENSION
     Dosage: 20 MG, DAILY (1/D)
  3. IBUPROFEN [Concomitant]

REACTIONS (9)
  - BACK DISORDER [None]
  - BALANCE DISORDER [None]
  - CRYING [None]
  - DISTURBANCE IN ATTENTION [None]
  - FATIGUE [None]
  - FEELING ABNORMAL [None]
  - OFF LABEL USE [None]
  - PARAESTHESIA [None]
  - SOMNOLENCE [None]
